FAERS Safety Report 8977799 (Version 3)
Quarter: 2013Q4

REPORT INFORMATION
  Report Type: Spontaneous
  Country: US (occurrence: US)
  Receive Date: 20121220
  Receipt Date: 20131023
  Transmission Date: 20140711
  Serious: Yes (Other)
  Sender: FDA-Public Use
  Company Number: US-ROCHE-728141

PATIENT
  Age: 15 Year
  Sex: Female
  Weight: 49.9 kg

DRUGS (5)
  1. ACCUTANE [Suspect]
     Indication: ACNE
     Route: 065
  2. ACCUTANE [Suspect]
     Route: 065
  3. ACCUTANE [Suspect]
     Route: 065
     Dates: start: 19961118, end: 19970128
  4. ACCUTANE [Suspect]
     Dosage: TAKEN FOR 30 WEEK WITH A 6 WEEK HIATUS
     Route: 065
     Dates: start: 19970303, end: 199704
  5. ASPIRIN [Concomitant]
     Indication: MIGRAINE

REACTIONS (13)
  - Proctitis ulcerative [Unknown]
  - Inflammatory bowel disease [Unknown]
  - Chronic fatigue syndrome [Unknown]
  - Irritable bowel syndrome [Unknown]
  - Oral herpes [Unknown]
  - Sleep disorder [Unknown]
  - Dry skin [Unknown]
  - Abdominal pain [Unknown]
  - Haemorrhage [Unknown]
  - Blood triglycerides increased [Unknown]
  - Blood cholesterol increased [Unknown]
  - Appendix cancer [Unknown]
  - Fallopian tube cyst [Unknown]
